FAERS Safety Report 16499765 (Version 2)
Quarter: 2019Q3

REPORT INFORMATION
  Report Type: Spontaneous
  Country: ES (occurrence: ES)
  Receive Date: 20190701
  Receipt Date: 20190726
  Transmission Date: 20191004
  Serious: Yes (Other)
  Sender: FDA-Public Use
  Company Number: ES-ACCORD-135480

PATIENT
  Age: 16 Year
  Sex: Female

DRUGS (5)
  1. CISPLATIN. [Suspect]
     Active Substance: CISPLATIN
     Indication: OVARIAN CANCER
     Dosage: 20 MG/M2/D X 5 D/CYCLE X 5 CYCLES
  2. DECAPEPTYL IPSEN PHARMA BIOTECH [Concomitant]
     Indication: PROPHYLAXIS
     Dosage: FIRST 25 DAYS OF TREATMENT
  3. ETOPOSIDE. [Suspect]
     Active Substance: ETOPOSIDE
     Indication: OVARIAN CANCER
     Dosage: 100 MG/M2/D X 5D/CYCLE X 5 CYCLES
  4. BLEOMYCIN [Suspect]
     Active Substance: BLEOMYCIN SULFATE
     Indication: OVARIAN CANCER
     Dosage: 30 MG/M2 /D X 3 DAYS IN THE FIRST 4 CYCLES AND A SINGLE DOSE IN THE LAST CYCLE
  5. ANDROCUR DELPHARM LILLE SAS [Concomitant]
     Indication: PROPHYLAXIS
     Dosage: FIRST 25 DAYS OF TREATMENT

REACTIONS (1)
  - Tooth resorption [Recovered/Resolved]
